FAERS Safety Report 7709116-5 (Version None)
Quarter: 2011Q3

REPORT INFORMATION
  Report Type: 
  Country: None (occurrence: None)
  Receive Date: 20110825
  Receipt Date: 20110816
  Transmission Date: 20111222
  Serious: Yes (Hospitalization)
  Sender: FDA-Public Use
  Company Number: PHHO2010ES08449

PATIENT
  Sex: Female
  Weight: 62 kg

DRUGS (3)
  1. RIBAVIRIN [Concomitant]
     Dosage: 1000 MG, QD
     Route: 048
     Dates: start: 20100507
  2. CYCLOSPORINE [Suspect]
     Indication: LIVER TRANSPLANT
     Dosage: UNK
     Dates: start: 20100302
  3. RIBAVIRIN [Concomitant]
     Dosage: 400 MG, QD
     Route: 048
     Dates: start: 20100528

REACTIONS (2)
  - ANAEMIA [None]
  - SYNCOPE [None]
